FAERS Safety Report 20890571 (Version 2)
Quarter: 2022Q4

REPORT INFORMATION
  Report Type: Spontaneous
  Country: US (occurrence: US)
  Receive Date: 20220530
  Receipt Date: 20221124
  Transmission Date: 20230113
  Serious: No
  Sender: FDA-Public Use
  Company Number: US-BRISTOL-MYERS SQUIBB COMPANY-2022-047215

PATIENT
  Age: 63 Year
  Sex: Male
  Weight: 54.3 kg

DRUGS (1)
  1. REVLIMID [Suspect]
     Active Substance: LENALIDOMIDE
     Indication: Plasma cell myeloma
     Dosage: FREQUENCY-D 1-21 Q 28 DAYS?DAILY ON DAYS 1-7 AND 15-21 EVERY 28 DAYS
     Route: 048
     Dates: start: 20211021

REACTIONS (2)
  - Blood iron decreased [Unknown]
  - Off label use [Unknown]
